FAERS Safety Report 17248304 (Version 1)
Quarter: 2020Q1

REPORT INFORMATION
  Report Type: Spontaneous
  Country: NL (occurrence: FI)
  Receive Date: 20200108
  Receipt Date: 20200108
  Transmission Date: 20200409
  Serious: Yes (Hospitalization)
  Sender: FDA-Public Use
  Company Number: FI-FRESENIUS KABI-FK202000152

PATIENT
  Age: 63 Year
  Sex: Male

DRUGS (9)
  1. ETOPOSIDE INJECTION, USP [Suspect]
     Active Substance: ETOPOSIDE
     Indication: B-CELL LYMPHOMA
     Route: 042
     Dates: start: 20191204, end: 20191204
  2. DOXORUBICIN [Concomitant]
     Active Substance: DOXORUBICIN
     Indication: PRODUCT USED FOR UNKNOWN INDICATION
     Dosage: 100,MG,DAILY
     Route: 065
     Dates: start: 20191204, end: 20191204
  3. RITUXIMAB. [Concomitant]
     Active Substance: RITUXIMAB
     Indication: PRODUCT USED FOR UNKNOWN INDICATION
     Dosage: 1400,MG,DAILY
     Route: 065
     Dates: start: 20191204, end: 20191204
  4. ETOPOSIDE. [Suspect]
     Active Substance: ETOPOSIDE
     Indication: B-CELL LYMPHOMA
     Route: 048
     Dates: start: 20191205, end: 20191206
  5. LIPEGFILGRASTIM [Concomitant]
     Active Substance: LIPEGFILGRASTIM
     Indication: PRODUCT USED FOR UNKNOWN INDICATION
     Dosage: 6,MG,DAILY
     Route: 058
     Dates: start: 20191207, end: 20191207
  6. VINCRISTINE SULFATE. [Concomitant]
     Active Substance: VINCRISTINE SULFATE
     Indication: PRODUCT USED FOR UNKNOWN INDICATION
     Dosage: 2,MG,DAILY
     Route: 042
     Dates: start: 20191204, end: 20191204
  7. PREDNISOLONE. [Concomitant]
     Active Substance: PREDNISOLONE
     Indication: PRODUCT USED FOR UNKNOWN INDICATION
     Dosage: 100,MG,DAILY
     Route: 048
     Dates: start: 20191204, end: 20191208
  8. CYCLOPHOSPHAMIDE. [Concomitant]
     Active Substance: CYCLOPHOSPHAMIDE
     Indication: PRODUCT USED FOR UNKNOWN INDICATION
     Route: 065
     Dates: start: 20191204, end: 20191204
  9. ONDANSETRON HYDROCHLORIDE. [Concomitant]
     Active Substance: ONDANSETRON HYDROCHLORIDE
     Indication: PRODUCT USED FOR UNKNOWN INDICATION
     Dosage: 8,MG,X1
     Route: 042
     Dates: start: 20191204, end: 20191204

REACTIONS (2)
  - Deep vein thrombosis [Not Recovered/Not Resolved]
  - Thrombophlebitis superficial [Not Recovered/Not Resolved]

NARRATIVE: CASE EVENT DATE: 20191212
